FAERS Safety Report 5189820-6 (Version None)
Quarter: 2006Q4

REPORT INFORMATION
  Report Type: 
  Country: None (occurrence: None)
  Receive Date: 20061218
  Receipt Date: 20061201
  Transmission Date: 20070319
  Serious: Yes (Hospitalization)
  Sender: FDA-Public Use
  Company Number: 8017601

PATIENT
  Age: 40 Year
  Sex: Female
  Weight: 58.18 kg

DRUGS (4)
  1. KEPPRA [Suspect]
     Indication: CONVULSION PROPHYLAXIS
     Dosage: 750 MG /D PO
     Route: 048
     Dates: start: 20030101
  2. DILANTIN [Concomitant]
  3. CENTRUM [Concomitant]
  4. CALCIUM MAGNESIUM ZINC [Concomitant]

REACTIONS (2)
  - LOWER LIMB FRACTURE [None]
  - WEIGHT INCREASED [None]
